FAERS Safety Report 13121211 (Version 1)
Quarter: 2017Q1

REPORT INFORMATION
  Report Type: Spontaneous
  Country: US (occurrence: US)
  Receive Date: 20170113
  Receipt Date: 20170113
  Transmission Date: 20170428
  Serious: Yes (Other)
  Sender: FDA-Public Use
  Company Number: None

PATIENT
  Sex: Female
  Weight: 65.25 kg

DRUGS (2)
  1. MORPHINE SULFATE. [Suspect]
     Active Substance: MORPHINE SULFATE
     Indication: ANAESTHESIA
     Route: 037
     Dates: start: 20170113
  2. MORPHINE SULFATE. [Suspect]
     Active Substance: MORPHINE SULFATE
     Indication: CAESAREAN SECTION
     Route: 037
     Dates: start: 20170113

REACTIONS (4)
  - Hypothermia [None]
  - Foetal exposure during delivery [None]
  - Heart rate decreased [None]
  - Maternal exposure during delivery [None]

NARRATIVE: CASE EVENT DATE: 20170113
